FAERS Safety Report 7267565-6 (Version None)
Quarter: 2011Q1

REPORT INFORMATION
  Report Type: 
  Country: None (occurrence: None)
  Receive Date: 20110201
  Receipt Date: 20110125
  Transmission Date: 20110831
  Serious: Yes (Hospitalization)
  Sender: FDA-Public Use
  Company Number: CN-ELI_LILLY_AND_COMPANY-CN201101006340

PATIENT
  Age: 64 Year
  Sex: Female
  Weight: 58 kg

DRUGS (3)
  1. HUMALOG MIX 75/25 [Suspect]
     Dosage: 14 U, 2/D
     Route: 058
     Dates: start: 20110112, end: 20110120
  2. PANCREATIC ENZYMES [Concomitant]
     Indication: DIABETIC NEPHROPATHY
     Dosage: 2 PILL, 3/D
     Route: 048
     Dates: start: 20110112, end: 20110120
  3. CANDESARTAN [Concomitant]
     Indication: HYPERTENSION
     Dosage: 1 PILL, DAILY (1/D)
     Route: 048
     Dates: start: 20110112, end: 20110112

REACTIONS (3)
  - NAUSEA [None]
  - HEART RATE INCREASED [None]
  - DISCOMFORT [None]
